FAERS Safety Report 6787996-8 (Version None)
Quarter: 2010Q2

REPORT INFORMATION
  Report Type: 
  Country: None (occurrence: None)
  Receive Date: 20100623
  Receipt Date: 20071215
  Transmission Date: 20101027
  Serious: No
  Sender: FDA-Public Use
  Company Number: US-PFIZER INC-2007086876

PATIENT
  Sex: Female
  Weight: 53.2 kg

DRUGS (1)
  1. DEPO-PROVERA SUSPENSION/INJ [Suspect]
     Indication: CONTRACEPTION
     Dates: start: 20060424

REACTIONS (2)
  - BLOOD PROLACTIN DECREASED [None]
  - GALACTORRHOEA [None]
